FAERS Safety Report 8488348-5 (Version None)
Quarter: 2012Q3

REPORT INFORMATION
  Report Type: 
  Country: None (occurrence: None)
  Receive Date: 20120705
  Receipt Date: 20120626
  Transmission Date: 20120928
  Serious: Yes (Other)
  Sender: FDA-Public Use
  Company Number: US-ASTRAZENECA-2012SE43305

PATIENT
  Age: 79 Year
  Sex: Female

DRUGS (14)
  1. LASIX [Concomitant]
  2. LIDEX [Concomitant]
  3. POTASSIUM SUPPLIMENT [Concomitant]
  4. XANAX [Concomitant]
     Indication: ANXIETY
  5. DIGOXIN [Concomitant]
  6. FORTEO [Concomitant]
     Indication: OSTEOPOROSIS
  7. DEXILANT [Concomitant]
  8. GLIMEPIRIDE [Concomitant]
     Indication: DIABETES MELLITUS
  9. PROAIR HFA [Concomitant]
     Route: 055
  10. SYMBICORT [Suspect]
     Route: 055
  11. DEXILANT [Concomitant]
     Indication: GASTROOESOPHAGEAL REFLUX DISEASE
  12. MAGNESIUM SUPPLIMENT [Concomitant]
  13. TRILIPIX [Concomitant]
     Indication: BLOOD TRIGLYCERIDES
  14. CETIRIZINE HCL [Concomitant]

REACTIONS (10)
  - CARDIAC DISORDER [None]
  - OSTEOPOROSIS [None]
  - HYPERTENSION [None]
  - ATRIAL FIBRILLATION [None]
  - DIABETES MELLITUS [None]
  - SPINAL DISORDER [None]
  - GASTROOESOPHAGEAL REFLUX DISEASE [None]
  - ANAEMIA [None]
  - TACHYCARDIA [None]
  - CARDIAC FAILURE CONGESTIVE [None]
